FAERS Safety Report 4896258-5 (Version None)
Quarter: 2006Q1

REPORT INFORMATION
  Report Type: 
  Country: None (occurrence: None)
  Receive Date: 20060126
  Receipt Date: 20060103
  Transmission Date: 20060701
  Serious: Yes (Death)
  Sender: FDA-Public Use
  Company Number: 2006BH000845

PATIENT

DRUGS (1)
  1. SEVOFLURANE [Suspect]
     Indication: ANAESTHESIA

REACTIONS (2)
  - BRADYCARDIA [None]
  - HYPOTENSION [None]
